FAERS Safety Report 6955964-9 (Version None)
Quarter: 2010Q3

REPORT INFORMATION
  Report Type: 
  Country: None (occurrence: None)
  Receive Date: 20100826
  Receipt Date: 20100826
  Transmission Date: 20110219
  Serious: Yes (Hospitalization)
  Sender: FDA-Public Use
  Company Number: None

PATIENT
  Age: 42 Year
  Sex: Female
  Weight: 80.91 kg

DRUGS (1)
  1. RASAGILINE [Suspect]
     Indication: PARKINSON'S DISEASE
     Dosage: 1MG DAILY PO
     Route: 048
     Dates: start: 20070101, end: 20100817

REACTIONS (2)
  - CONVULSION [None]
  - HYPERSENSITIVITY [None]
